FAERS Safety Report 18573543 (Version 2)
Quarter: 2021Q1

REPORT INFORMATION
  Report Type: Spontaneous
  Country: US (occurrence: US)
  Receive Date: 20201203
  Receipt Date: 20210105
  Transmission Date: 20210419
  Serious: Yes (Hospitalization, Other)
  Sender: FDA-Public Use
  Company Number: US-SA-2020SA344506

PATIENT

DRUGS (10)
  1. CALCITRIOL. [Concomitant]
     Active Substance: CALCITRIOL
  2. EPINEPHRINE. [Concomitant]
     Active Substance: EPINEPHRINE
  3. METOPROLOL. [Concomitant]
     Active Substance: METOPROLOL
  4. SENSIPAR [Concomitant]
     Active Substance: CINACALCET HYDROCHLORIDE
  5. FLOMAX [Concomitant]
     Active Substance: TAMSULOSIN HYDROCHLORIDE
  6. STERILE WATER [Concomitant]
     Active Substance: WATER
  7. FABRAZYME [Suspect]
     Active Substance: AGALSIDASE BETA
     Indication: FABRY^S DISEASE
     Dosage: 0.99 MG/KG (70 MG/70.2 KG), QOW
     Route: 042
     Dates: start: 20181129
  8. LIPITOR [Concomitant]
     Active Substance: ATORVASTATIN CALCIUM
     Dosage: UNK
  9. NORMAL SALINE [Concomitant]
     Active Substance: SODIUM CHLORIDE
  10. VITAMIN B COMPLEX [CYANOCOBALAMIN] [Concomitant]
     Dosage: UNK

REACTIONS (2)
  - End stage renal disease [Unknown]
  - Abdominal pain [Unknown]
